FAERS Safety Report 4962560-1 (Version None)
Quarter: 2006Q1

REPORT INFORMATION
  Report Type: 
  Country: None (occurrence: None)
  Receive Date: 20060201
  Receipt Date: 20051109
  Transmission Date: 20060701
  Serious: No
  Sender: FDA-Public Use
  Company Number: 2005PV004466

PATIENT
  Age: 78 Year
  Sex: Male
  Weight: 94.8018 kg

DRUGS (2)
  1. BYETTA [Suspect]
     Indication: DIABETES MELLITUS NON-INSULIN-DEPENDENT
     Dosage: SEE MAGE
     Route: 058
     Dates: start: 20050615, end: 20050715
  2. BYETTA [Suspect]
     Indication: DIABETES MELLITUS NON-INSULIN-DEPENDENT
     Dosage: SEE MAGE
     Route: 058
     Dates: start: 20050915

REACTIONS (2)
  - DECREASED APPETITE [None]
  - WEIGHT DECREASED [None]
